FAERS Safety Report 16037258 (Version 2)
Quarter: 2020Q3

REPORT INFORMATION
  Report Type: Spontaneous
  Country: IN (occurrence: IN)
  Receive Date: 20190305
  Receipt Date: 20200708
  Transmission Date: 20201102
  Serious: Yes (Other)
  Sender: FDA-Public Use
  Company Number: IN-PFIZER INC-2017394134

PATIENT
  Age: 66 Year
  Sex: Female

DRUGS (1)
  1. AROMASIN [Suspect]
     Active Substance: EXEMESTANE
     Indication: BREAST CANCER FEMALE
     Dosage: 25 MG, 1X/DAY
     Route: 048
     Dates: start: 201603

REACTIONS (10)
  - Emotional disorder [Unknown]
  - Cataract [Unknown]
  - Tension [Unknown]
  - Blood pressure increased [Unknown]
  - Malaise [Recovered/Resolved]
  - Eye disorder [Unknown]
  - Memory impairment [Unknown]
  - Pyrexia [Recovered/Resolved]
  - Condition aggravated [Unknown]
  - Hypotension [Recovered/Resolved]
